FAERS Safety Report 16463092 (Version 1)
Quarter: 2019Q2

REPORT INFORMATION
  Report Type: Spontaneous
  Country: JP (occurrence: JP)
  Receive Date: 20190621
  Receipt Date: 20190621
  Transmission Date: 20190711
  Serious: Yes (Other)
  Sender: FDA-Public Use
  Company Number: JP-BRISTOL-MYERS SQUIBB COMPANY-BMS-2019-059922

PATIENT
  Age: 54 Year
  Sex: Female

DRUGS (4)
  1. VICTOZA [Suspect]
     Active Substance: LIRAGLUTIDE
     Indication: BLOOD GLUCOSE INCREASED
     Dosage: UNK
     Route: 058
  2. METGLUCO [Suspect]
     Active Substance: METFORMIN HYDROCHLORIDE
     Indication: BLOOD GLUCOSE INCREASED
     Dosage: UNK
     Route: 048
  3. PIOGLITAZONE. [Concomitant]
     Active Substance: PIOGLITAZONE
     Indication: BLOOD GLUCOSE INCREASED
     Dosage: UNK
     Route: 065
  4. JARDIANCE [Suspect]
     Active Substance: EMPAGLIFLOZIN
     Indication: BLOOD GLUCOSE INCREASED
     Dosage: UNK
     Route: 065

REACTIONS (3)
  - Diabetic ketoacidosis [Recovered/Resolved]
  - Decreased appetite [Unknown]
  - Vomiting [Unknown]
